FAERS Safety Report 5467049-1 (Version None)
Quarter: 2007Q3

REPORT INFORMATION
  Report Type: 
  Country: None (occurrence: None)
  Receive Date: 20070925
  Receipt Date: 20070917
  Transmission Date: 20080115
  Serious: Yes (Hospitalization)
  Sender: FDA-Public Use
  Company Number: B0488252A

PATIENT
  Age: 81 Year
  Sex: Female

DRUGS (4)
  1. ZELITREX [Suspect]
     Indication: HERPES ZOSTER
     Route: 048
     Dates: start: 20070501, end: 20070601
  2. ISOPTINE LP [Suspect]
     Dosage: 120MG PER DAY
     Route: 048
     Dates: end: 20070601
  3. PREVISCAN [Concomitant]
     Route: 048
  4. BEFIZAL [Concomitant]
     Route: 048

REACTIONS (3)
  - CONDITION AGGRAVATED [None]
  - HYPOTENSION [None]
  - MALAISE [None]
